FAERS Safety Report 8915464 (Version 1)
Quarter: 2012Q4

REPORT INFORMATION
  Report Type: Report from Study
  Country: US (occurrence: US)
  Receive Date: 20121119
  Receipt Date: 20121119
  Transmission Date: 20130627
  Serious: Yes (Other)
  Sender: FDA-Public Use
  Company Number: US-JNJFOC-20121106892

PATIENT
  Age: 55 Year
  Sex: Female
  Weight: 122.47 kg

DRUGS (13)
  1. REMICADE [Suspect]
     Indication: FIBROMYALGIA
     Route: 042
     Dates: start: 20121016
  2. REMICADE [Suspect]
     Indication: FIBROMYALGIA
     Route: 042
     Dates: start: 20121106, end: 20121106
  3. REMICADE [Suspect]
     Indication: RHEUMATOID ARTHRITIS
     Route: 042
     Dates: start: 20121016
  4. REMICADE [Suspect]
     Indication: RHEUMATOID ARTHRITIS
     Route: 042
     Dates: start: 20121106, end: 20121106
  5. LYRICA [Concomitant]
     Indication: NEURALGIA
     Route: 048
  6. LIPITOR [Concomitant]
  7. LISINOPRIL [Concomitant]
     Indication: HYPERTENSION
     Route: 048
  8. ADVAIR [Concomitant]
     Indication: ASTHMA
     Dosage: 250mg/50mg
  9. ALL OTHER MEDICATIONS [Concomitant]
     Indication: PAIN
     Dosage: exalgo
     Route: 048
  10. HYDROCODONE [Concomitant]
     Indication: PAIN
     Dosage: 10mg/325mg one or two tablets every 4-6 hours
  11. PREDNISONE [Concomitant]
     Route: 048
  12. VICTOZA [Concomitant]
     Indication: DIABETES MELLITUS
     Dosage: 1.8mcg
     Route: 058
  13. XOPENEX [Concomitant]
     Indication: ASTHMA
     Route: 055

REACTIONS (8)
  - Chest discomfort [Recovered/Resolved]
  - Paraesthesia [Recovered/Resolved]
  - Blood pressure fluctuation [Unknown]
  - Hypertension [Not Recovered/Not Resolved]
  - Hyperhidrosis [Not Recovered/Not Resolved]
  - Infusion related reaction [Unknown]
  - Alopecia [Recovering/Resolving]
  - Abdominal discomfort [Recovered/Resolved]
